FAERS Safety Report 4562420-4 (Version None)
Quarter: 2005Q1

REPORT INFORMATION
  Report Type: 
  Country: None (occurrence: None)
  Receive Date: 20050121
  Receipt Date: 20050110
  Transmission Date: 20050727
  Serious: Yes (Life-Threatening)
  Sender: FDA-Public Use
  Company Number: 2004-BP-13322AU

PATIENT
  Age: 56 Year
  Sex: Male

DRUGS (6)
  1. MOBIC [Suspect]
     Indication: OSTEOARTHRITIS
     Dosage: 15 MG (15 MG, ONE TABLET DAILY), PO
     Route: 048
  2. DIABEX (METFORMIN HYDROCHLORIDE) [Concomitant]
  3. GLICLAZIDE (GLICLAZIDE) [Concomitant]
  4. MONOPLUS (MONOPLUS) [Concomitant]
  5. PRAVASTATIN [Concomitant]
  6. ASPIRIN [Concomitant]

REACTIONS (2)
  - GASTRIC ULCER [None]
  - GASTROINTESTINAL HAEMORRHAGE [None]
